FAERS Safety Report 18489988 (Version 1)
Quarter: 2020Q4

REPORT INFORMATION
  Report Type: Spontaneous
  Country: US (occurrence: US)
  Receive Date: 20201111
  Receipt Date: 20201111
  Transmission Date: 20210114
  Serious: Yes (Disabling)
  Sender: FDA-Public Use
  Company Number: None

PATIENT
  Age: 46 Year
  Sex: Female
  Weight: 81 kg

DRUGS (2)
  1. DESOXIMETASONE. [Suspect]
     Active Substance: DESOXIMETASONE
     Indication: DERMATITIS CONTACT
     Route: 061
     Dates: start: 20180201, end: 20190830
  2. VITAMIN D [Concomitant]
     Active Substance: VITAMIN D NOS

REACTIONS (5)
  - Skin weeping [None]
  - Dermatitis [None]
  - Impaired healing [None]
  - Symptom recurrence [None]
  - Dermatitis contact [None]

NARRATIVE: CASE EVENT DATE: 20190801
